FAERS Safety Report 20891850 (Version 1)
Quarter: 2022Q2

REPORT INFORMATION
  Report Type: Spontaneous
  Country: CN (occurrence: CN)
  Receive Date: 20220530
  Receipt Date: 20220530
  Transmission Date: 20220721
  Serious: Yes (Other)
  Sender: FDA-Public Use
  Company Number: None

PATIENT
  Age: 53 Year
  Sex: Female
  Weight: 86 kg

DRUGS (8)
  1. CYCLOPHOSPHAMIDE [Suspect]
     Active Substance: CYCLOPHOSPHAMIDE
     Indication: Invasive ductal breast carcinoma
     Dosage: UNK, QD, FIRST CYCLE OF ADJUVANT CHEMOTHERAPY, CYCLOPHOSPHAMIDE + SODIUM CHLORIDE INJECTION
     Route: 041
  2. CYCLOPHOSPHAMIDE [Suspect]
     Active Substance: CYCLOPHOSPHAMIDE
     Indication: Hormone receptor positive breast cancer
     Dosage: 1.1 G ONCE DAILY, SECOND CYCLE OF ADJUVANT CHEMOTHERAPY,  SECOND CYCLE OF ADJUVANT CHEMOTHERAPY, CYC
     Route: 041
     Dates: start: 20220420, end: 20220420
  3. DOXORUBICIN [Suspect]
     Active Substance: DOXORUBICIN
     Indication: Invasive ductal breast carcinoma
     Dosage: UNK, FIRST CYCLE OF ADJUVANT CHEMOTHERAPY, DUOMEISU + GLUCOSE INJECTION
     Route: 041
  4. DOXORUBICIN [Suspect]
     Active Substance: DOXORUBICIN
     Indication: Hormone receptor positive breast cancer
     Dosage: 60 MG, ONCE DAILY, SECOND CYCLE OF ADJUVANT CHEMOTHERAPY, DUOMEISU (60MG) +  GLUCOSE INJECTION (250M
     Route: 041
     Dates: start: 20220420, end: 20220420
  5. SODIUM CHLORIDE [Suspect]
     Active Substance: SODIUM CHLORIDE
     Indication: Medication dilution
     Dosage: UNK, QD, FIRST CYCLE OF ADJUVANT CHEMOTHERAPY, CYCLOPHOSPHAMIDE + SODIUM CHLORIDE INJECTION
     Route: 041
  6. SODIUM CHLORIDE [Suspect]
     Active Substance: SODIUM CHLORIDE
     Dosage: 500 ML, QD, SECOND CYCLE OF ADJUVANT CHEMOTHERAPY, CYCLOPHOSPHAMIDE (1.1G) + SODIUM CHLORIDE INJECTI
     Route: 041
     Dates: start: 20220420, end: 20220420
  7. DEXTROSE [Suspect]
     Active Substance: DEXTROSE
     Indication: Medication dilution
     Dosage: UNK UNK, QD,FIRST CYCLE OF ADJUVANT CHEMOTHERAPY, DUOMEISU + GLUCOSE INJECTION
     Route: 041
  8. DEXTROSE [Suspect]
     Active Substance: DEXTROSE
     Dosage: 250 ML, QD, SECOND CYCLE OF ADJUVANT CHEMOTHERAPY, DUOMEISU (60MG) +  GLUCOSE INJECTION (250ML)
     Route: 041
     Dates: start: 20220420, end: 20220420

REACTIONS (1)
  - Drug-induced liver injury [Recovering/Resolving]

NARRATIVE: CASE EVENT DATE: 20220510
